FAERS Safety Report 5475140-9 (Version None)
Quarter: 2007Q4

REPORT INFORMATION
  Report Type: 
  Country: None (occurrence: None)
  Receive Date: 20071002
  Receipt Date: 20070924
  Transmission Date: 20080405
  Serious: Yes (Other)
  Sender: FDA-Public Use
  Company Number: US-PFIZER INC-2007079704

PATIENT
  Age: 76 Year
  Sex: Male

DRUGS (1)
  1. CARDURA [Suspect]

REACTIONS (2)
  - BUNDLE BRANCH BLOCK RIGHT [None]
  - LOSS OF CONSCIOUSNESS [None]
